FAERS Safety Report 25751714 (Version 1)
Quarter: 2025Q3

REPORT INFORMATION
  Report Type: Spontaneous
  Country: US (occurrence: None)
  Receive Date: 20250901
  Receipt Date: 20250901
  Transmission Date: 20251021
  Serious: Yes (Other)
  Sender: FDA-CTU
  Company Number: None

PATIENT
  Age: 57 Year
  Sex: Female
  Weight: 67.5 kg

DRUGS (4)
  1. RINVOQ [Suspect]
     Active Substance: UPADACITINIB
     Indication: Eczema
     Dosage: OTHER QUANTITY : 1 CAPSULE(S);?FREQUENCY : AT BEDTIME;?
     Route: 048
  2. CIBINQO [Suspect]
     Active Substance: ABROCITINIB
  3. METHYLPREDNISOLONE [Concomitant]
     Active Substance: METHYLPREDNISOLONE
  4. ZINC PICOLINATE [Concomitant]
     Active Substance: ZINC PICOLINATE

REACTIONS (8)
  - Withdrawal syndrome [None]
  - Drug ineffective [None]
  - Erythema [None]
  - Chemical burn of skin [None]
  - Skin weeping [None]
  - Alopecia [None]
  - Housebound [None]
  - Inflammation [None]

NARRATIVE: CASE EVENT DATE: 20250527
